FAERS Safety Report 12880970 (Version 1)
Quarter: 2016Q4

REPORT INFORMATION
  Report Type: Spontaneous
  Country: US (occurrence: US)
  Receive Date: 20161024
  Receipt Date: 20161024
  Transmission Date: 20170207
  Serious: Yes (Life-Threatening, Hospitalization)
  Sender: FDA-Public Use
  Company Number: None

PATIENT
  Age: 78 Year
  Sex: Male
  Weight: 73 kg

DRUGS (1)
  1. IBRUTINIB [Suspect]
     Active Substance: IBRUTINIB
     Route: 048
     Dates: start: 20140701, end: 20161005

REACTIONS (10)
  - Abscess fungal [None]
  - Confusional state [None]
  - Dizziness [None]
  - Dysphagia [None]
  - Asthenia [None]
  - Pneumocephalus [None]
  - Aspergillus infection [None]
  - Aphasia [None]
  - Brain abscess [None]
  - Subdural haemorrhage [None]

NARRATIVE: CASE EVENT DATE: 20161005
